FAERS Safety Report 14529325 (Version 1)
Quarter: 2018Q1

REPORT INFORMATION
  Report Type: Spontaneous
  Country: US (occurrence: US)
  Receive Date: 20180214
  Receipt Date: 20180214
  Transmission Date: 20180509
  Serious: Yes (Other)
  Sender: FDA-Public Use
  Company Number: US-WEST-WARD PHARMACEUTICALS CORP.-US-H14001-18-00992

PATIENT
  Sex: Male

DRUGS (2)
  1. MIDAZOLAM [Suspect]
     Active Substance: MIDAZOLAM HYDROCHLORIDE
     Indication: DENTAL OPERATION
     Route: 065
     Dates: start: 20180129, end: 20180129
  2. FLUMAZENIL. [Suspect]
     Active Substance: FLUMAZENIL
     Indication: DENTAL OPERATION
     Route: 065
     Dates: start: 20180129, end: 20180129

REACTIONS (5)
  - Anxiety [Unknown]
  - Paranoia [Unknown]
  - Somnolence [Unknown]
  - Vision blurred [Unknown]
  - Feeling abnormal [Unknown]

NARRATIVE: CASE EVENT DATE: 20180129
